FAERS Safety Report 7522835-9 (Version None)
Quarter: 2011Q2

REPORT INFORMATION
  Report Type: 
  Country: None (occurrence: None)
  Receive Date: 20110603
  Receipt Date: 20110525
  Transmission Date: 20111010
  Serious: Yes (Other)
  Sender: FDA-Public Use
  Company Number: PHHY2011IE44755

PATIENT
  Age: 61 Year
  Sex: Female

DRUGS (5)
  1. MIRTAZAPINE [Concomitant]
     Indication: DEPRESSION
  2. WARFARIN SODIUM [Suspect]
     Indication: PULMONARY EMBOLISM
     Dates: start: 20090401
  3. AZATHIOPRINE [Suspect]
  4. MYCOPHENOLATE MEFETIL [Suspect]
     Dosage: 2 G/DAY
  5. VENLAFAXINE [Concomitant]
     Indication: DEPRESSION

REACTIONS (18)
  - MYOSITIS [None]
  - SPEECH DISORDER [None]
  - SKIN OEDEMA [None]
  - DYSSTASIA [None]
  - BENIGN NEOPLASM OF CERVIX UTERI [None]
  - LICHENIFICATION [None]
  - MYALGIA [None]
  - FACE OEDEMA [None]
  - BLOOD CREATINE PHOSPHOKINASE INCREASED [None]
  - SQUAMOUS CELL CARCINOMA [None]
  - ASTHENIA [None]
  - DERMATOMYOSITIS [None]
  - ERYTHEMA [None]
  - MUSCULAR WEAKNESS [None]
  - OEDEMA PERIPHERAL [None]
  - PHOTOSENSITIVITY REACTION [None]
  - METASTASES TO LUNG [None]
  - DYSPHAGIA [None]
